FAERS Safety Report 7751857-8 (Version None)
Quarter: 2011Q3

REPORT INFORMATION
  Report Type: 
  Country: None (occurrence: None)
  Receive Date: 20110914
  Receipt Date: 20110914
  Transmission Date: 20111222
  Serious: Yes (Hospitalization)
  Sender: FDA-Public Use
  Company Number: None

PATIENT
  Age: 84 Year
  Sex: Male
  Weight: 77.4 kg

DRUGS (1)
  1. TERAZOSIN HCL [Suspect]
     Indication: URINARY RETENTION
     Dosage: 1 MG EVERY DAY PO
     Route: 048
     Dates: start: 20110819, end: 20110831

REACTIONS (3)
  - SYNCOPE [None]
  - LOSS OF CONSCIOUSNESS [None]
  - MYOCLONUS [None]
